FAERS Safety Report 12186017 (Version 1)
Quarter: 2016Q1

REPORT INFORMATION
  Report Type: Spontaneous
  Country: SA (occurrence: SA)
  Receive Date: 20160317
  Receipt Date: 20160317
  Transmission Date: 20160526
  Serious: Yes (Hospitalization)
  Sender: FDA-Public Use
  Company Number: SA-ROXANE LABORATORIES, INC.-2016-RO-00478RO

PATIENT
  Age: 55 Year
  Sex: Male

DRUGS (5)
  1. DOXORUBICIN [Suspect]
     Active Substance: DOXORUBICIN
     Indication: HODGKIN^S DISEASE LYMPHOCYTE PREDOMINANCE TYPE STAGE UNSPECIFIED
     Route: 065
  2. VINCRISTINE [Suspect]
     Active Substance: VINCRISTINE
     Indication: HODGKIN^S DISEASE LYMPHOCYTE PREDOMINANCE TYPE STAGE UNSPECIFIED
     Route: 065
  3. CYCLOPHOSPHAMIDE. [Suspect]
     Active Substance: CYCLOPHOSPHAMIDE
     Indication: HODGKIN^S DISEASE LYMPHOCYTE PREDOMINANCE TYPE STAGE UNSPECIFIED
     Route: 065
  4. PREDNISONE TABLETS USP, 5MG [Suspect]
     Active Substance: PREDNISONE
     Indication: HODGKIN^S DISEASE LYMPHOCYTE PREDOMINANCE TYPE STAGE UNSPECIFIED
     Route: 065
  5. RITUXIMAB [Suspect]
     Active Substance: RITUXIMAB
     Indication: HODGKIN^S DISEASE LYMPHOCYTE PREDOMINANCE TYPE STAGE UNSPECIFIED
     Route: 065

REACTIONS (2)
  - Progressive multifocal leukoencephalopathy [Unknown]
  - Neutropenia [Unknown]
